FAERS Safety Report 17186812 (Version 1)
Quarter: 2019Q4

REPORT INFORMATION
  Report Type: Spontaneous
  Country: US (occurrence: US)
  Receive Date: 20191220
  Receipt Date: 20191220
  Transmission Date: 20200122
  Serious: No
  Sender: FDA-Public Use
  Company Number: US-ASTRAZENECA-2019SF67754

PATIENT
  Age: 25542 Day
  Sex: Male

DRUGS (2)
  1. BYDUREON [Suspect]
     Active Substance: EXENATIDE
     Indication: DIABETES MELLITUS
     Route: 058
  2. BYDUREON BCISE [Suspect]
     Active Substance: EXENATIDE
     Indication: DIABETES MELLITUS
     Route: 058
     Dates: start: 20191106

REACTIONS (5)
  - Drug dose omission by device [Unknown]
  - Wrong technique in product usage process [Unknown]
  - Device leakage [Unknown]
  - Injection site haemorrhage [Unknown]
  - Wrong product administered [Unknown]

NARRATIVE: CASE EVENT DATE: 20191120
